FAERS Safety Report 17320641 (Version 2)
Quarter: 2021Q1

REPORT INFORMATION
  Report Type: Other
  Country: US (occurrence: US)
  Receive Date: 20200126
  Receipt Date: 20210125
  Transmission Date: 20210419
  Serious: No
  Sender: FDA-Public Use
  Company Number: US-ACORDA-ACO_156847_2019

PATIENT
  Age: 67 Year
  Sex: Female

DRUGS (2)
  1. AMPYRA [Suspect]
     Active Substance: DALFAMPRIDINE
     Indication: MULTIPLE SCLEROSIS
     Dosage: 10 MILLIGRAM, BID
     Route: 048
  2. AMPYRA [Suspect]
     Active Substance: DALFAMPRIDINE
     Dosage: 10 MILLIGRAM, Q 12 HRS
     Route: 048

REACTIONS (5)
  - Balance disorder [Unknown]
  - Fall [Recovered/Resolved]
  - Fear of falling [Unknown]
  - Fear [Unknown]
  - Product dose omission issue [Unknown]

NARRATIVE: CASE EVENT DATE: 201803
